FAERS Safety Report 8901934 (Version 1)
Quarter: 2012Q4

REPORT INFORMATION
  Report Type: Spontaneous
  Country: US (occurrence: None)
  Receive Date: 20121109
  Receipt Date: 20121109
  Transmission Date: 20130627
  Serious: Yes (Other)
  Sender: FDA-Public Use
  Company Number: None

PATIENT
  Age: 45 Year
  Sex: Female
  Weight: 55.79 kg

DRUGS (1)
  1. SULFAMETHOAXAZOLE TMP DS TABLET [Suspect]
     Indication: URINARY TRACT INFECTION
     Dates: start: 20121013, end: 20121017

REACTIONS (3)
  - Insomnia [None]
  - Anxiety [None]
  - Decreased appetite [None]
